FAERS Safety Report 5615207-5 (Version None)
Quarter: 2008Q1

REPORT INFORMATION
  Report Type: 
  Country: None (occurrence: None)
  Receive Date: 20080205
  Receipt Date: 20080205
  Transmission Date: 20080703
  Serious: Yes (Other)
  Sender: FDA-Public Use
  Company Number: None

PATIENT
  Sex: Female
  Weight: 68.0396 kg

DRUGS (1)
  1. CYMBALTA [Suspect]
     Indication: NEUROPATHY PERIPHERAL
     Dosage: 1 DAY PO
     Route: 048
     Dates: start: 20041101, end: 20041101

REACTIONS (12)
  - ABASIA [None]
  - BALANCE DISORDER [None]
  - DECREASED ACTIVITY [None]
  - DISORIENTATION [None]
  - DISTURBANCE IN ATTENTION [None]
  - DIZZINESS [None]
  - HEADACHE [None]
  - ILL-DEFINED DISORDER [None]
  - NAUSEA [None]
  - PAIN IN EXTREMITY [None]
  - STOMACH DISCOMFORT [None]
  - TREMOR [None]
